FAERS Safety Report 6968362-9 (Version None)
Quarter: 2010Q3

REPORT INFORMATION
  Report Type: 
  Country: None (occurrence: None)
  Receive Date: 20100907
  Receipt Date: 20100831
  Transmission Date: 20110219
  Serious: Yes (Death)
  Sender: FDA-Public Use
  Company Number: GB-ROCHE-723861

PATIENT
  Sex: Male
  Weight: 75 kg

DRUGS (3)
  1. CAPECITABINE [Suspect]
     Dosage: LAST DOSE PRIOR TO SAE: 09 JUNE 2010.
     Route: 065
     Dates: start: 20100319
  2. CISPLATIN [Suspect]
     Dosage: LAST DOSE PRIOR TO SAE: 19 MAY 2010.
     Route: 065
     Dates: start: 20100319
  3. EPIRUBICIN [Suspect]
     Dosage: LAST DOSE PRIOR TO SAE: 19 MAY 2010.
     Route: 065
     Dates: start: 20100319

REACTIONS (1)
  - PULMONARY EMBOLISM [None]
